FAERS Safety Report 6931411-8 (Version None)
Quarter: 2010Q3

REPORT INFORMATION
  Report Type: 
  Country: None (occurrence: None)
  Receive Date: 20100816
  Receipt Date: 20100724
  Transmission Date: 20110219
  Serious: Yes (Other)
  Sender: FDA-Public Use
  Company Number: 2010AP001542

PATIENT
  Age: 71 Year
  Sex: Female

DRUGS (1)
  1. LITHIUM CARBONATE CAP [Suspect]

REACTIONS (2)
  - PROGRESSIVE SUPRANUCLEAR PALSY [None]
  - THERAPEUTIC AGENT TOXICITY [None]
